FAERS Safety Report 11760519 (Version 3)
Quarter: 2018Q2

REPORT INFORMATION
  Report Type: Spontaneous
  Country: US (occurrence: US)
  Receive Date: 20151120
  Receipt Date: 20180625
  Transmission Date: 20180711
  Serious: Yes (Hospitalization)
  Sender: FDA-Public Use
  Company Number: US-PFIZER INC-2015387900

PATIENT
  Age: 61 Year
  Sex: Male

DRUGS (4)
  1. DOCETAXEL. [Suspect]
     Active Substance: DOCETAXEL
     Indication: SQUAMOUS CELL CARCINOMA
     Dosage: UNK, CYCLIC
  2. CISPLATIN. [Concomitant]
     Active Substance: CISPLATIN
     Dosage: UNK
  3. CISPLATIN. [Concomitant]
     Active Substance: CISPLATIN
     Dosage: UNK, CYCLIC
  4. 5-FLUOROURACIL [Concomitant]
     Active Substance: FLUOROURACIL
     Dosage: UNK, CYCLIC

REACTIONS (1)
  - Lung disorder [Recovering/Resolving]
